FAERS Safety Report 6344789-3 (Version None)
Quarter: 2009Q3

REPORT INFORMATION
  Report Type: 
  Country: None (occurrence: None)
  Receive Date: 20090904
  Receipt Date: 20090819
  Transmission Date: 20100115
  Serious: Yes (Hospitalization, Other)
  Sender: FDA-Public Use
  Company Number: 2009S1002299

PATIENT
  Age: 58 Year
  Sex: Female
  Weight: 61.6892 kg

DRUGS (13)
  1. PHOSPHOSODA FLAVOR NOT SPECIFIED [Suspect]
     Indication: COLONOSCOPY
     Dosage: 90 ML; TOTAL; PO
     Route: 048
     Dates: start: 20080114, end: 20080114
  2. CT CONTRAST [Suspect]
     Indication: COMPUTERISED TOMOGRAM
  3. HUMALOG [Concomitant]
  4. ESTRACE [Concomitant]
  5. CLARITIN [Concomitant]
  6. WELLBUTRIN [Concomitant]
  7. OSCAL D [Concomitant]
  8. VITAMIN E [Concomitant]
  9. FERROUS SULFATE TAB [Concomitant]
  10. DONNATAL [Concomitant]
  11. DEMEROL [Concomitant]
  12. VERSED [Concomitant]
  13. VIT C [Concomitant]

REACTIONS (11)
  - ABDOMINAL PAIN [None]
  - CHEST PAIN [None]
  - DYSPNOEA [None]
  - FEELING COLD [None]
  - HYPERPHOSPHATAEMIA [None]
  - HYPOVOLAEMIA [None]
  - INFLUENZA LIKE ILLNESS [None]
  - NEPHROPATHY [None]
  - RENAL FAILURE ACUTE [None]
  - THERAPEUTIC AGENT TOXICITY [None]
  - WEIGHT DECREASED [None]
